FAERS Safety Report 8850898 (Version 1)
Quarter: 2012Q4

REPORT INFORMATION
  Report Type: 
  Country: US (occurrence: US)
  Receive Date: 20121019
  Receipt Date: 20121019
  Transmission Date: 20130627
  Serious: No
  Sender: FDA-Public Use
  Company Number: US-PFIZER INC-2012259193

PATIENT
  Age: 80 Year
  Sex: Female
  Weight: 77.1 kg

DRUGS (5)
  1. NORVASC [Suspect]
     Indication: HYPERTENSION
     Dosage: 10 mg, daily
  2. LIPITOR [Suspect]
     Indication: BLOOD CHOLESTEROL INCREASED
     Dosage: 20 mg, daily
  3. ACCUPRIL [Suspect]
     Indication: HYPERTENSION
     Dosage: 40 mg, daily
  4. SYNTHROID [Concomitant]
     Indication: HYPOTHYROIDISM
     Dosage: 0.088 mg, daily
  5. FOLIC ACID [Concomitant]
     Dosage: 1 mg, daily

REACTIONS (3)
  - Bronchitis [Recovered/Resolved]
  - Nasopharyngitis [Recovered/Resolved]
  - Laryngitis [Recovered/Resolved]
